FAERS Safety Report 7308529-3 (Version None)
Quarter: 2011Q1

REPORT INFORMATION
  Report Type: 
  Country: None (occurrence: None)
  Receive Date: 20110223
  Receipt Date: 20101229
  Transmission Date: 20110831
  Serious: Yes (Hospitalization)
  Sender: FDA-Public Use
  Company Number: US-BAYER-201024396NA

PATIENT
  Sex: Female
  Weight: 53.515 kg

DRUGS (2)
  1. YAZ [Suspect]
     Indication: ORAL CONTRACEPTION
     Route: 048
     Dates: start: 20060101
  2. YASMIN [Suspect]
     Indication: ORAL CONTRACEPTION
     Dosage: UNK
     Route: 048
     Dates: start: 20061201, end: 20071101

REACTIONS (3)
  - CHOLELITHIASIS [None]
  - BILIARY COLIC [None]
  - CHOLECYSTITIS CHRONIC [None]
